FAERS Safety Report 8450469 (Version 4)
Quarter: 2012Q4

REPORT INFORMATION
  Report Type: 
  Country: AT (occurrence: AT)
  Receive Date: 20120309
  Receipt Date: 20121031
  Transmission Date: 20130627
  Serious: Yes (Death, Hospitalization, Other)
  Sender: FDA-Public Use
  Company Number: AT-CELGENEUS-009-50794-12022821

PATIENT
  Age: 83 Year
  Sex: Female
  Weight: 74 kg

DRUGS (4)
  1. VIDAZA [Suspect]
     Indication: MDS
     Route: 058
     Dates: start: 20100213, end: 20100216
  2. GRANISETRON [Concomitant]
     Indication: DRUG USE FOR UNKNOWN INDICATION
     Route: 065
  3. BLOOD [Concomitant]
     Indication: MDS
     Route: 041
  4. PLATELETS [Concomitant]
     Indication: MDS
     Route: 041

REACTIONS (4)
  - Enterocolitis haemorrhagic [Recovered/Resolved]
  - Acute myeloid leukaemia [Fatal]
  - Febrile neutropenia [Unknown]
  - Constipation [Recovered/Resolved]
